FAERS Safety Report 5636804-7 (Version None)
Quarter: 2008Q1

REPORT INFORMATION
  Report Type: 
  Country: None (occurrence: None)
  Receive Date: 20080219
  Receipt Date: 20080219
  Transmission Date: 20080703
  Serious: No
  Sender: FDA-Public Use
  Company Number: None

PATIENT
  Age: 51 Year
  Sex: Male

DRUGS (2)
  1. METHYLPREDNISOLONE [Suspect]
     Dosage: 32MG EVERY DAY PO
     Route: 048
     Dates: start: 20070706, end: 20070709
  2. PREDNISONE TAB [Suspect]
     Dosage: 40MG EVERY DAY PO
     Route: 048
     Dates: start: 20070608, end: 20070709

REACTIONS (1)
  - MYOPATHY STEROID [None]
